FAERS Safety Report 24691982 (Version 1)
Quarter: 2024Q4

REPORT INFORMATION
  Report Type: Report from Study
  Country: IN (occurrence: IN)
  Receive Date: 20241203
  Receipt Date: 20241203
  Transmission Date: 20250114
  Serious: Yes (Other)
  Sender: UCB
  Company Number: IN-UCBSA-2024063263

PATIENT

DRUGS (1)
  1. LACOSAMIDE [Suspect]
     Active Substance: LACOSAMIDE
     Indication: Partial seizures
     Dosage: UNK

REACTIONS (6)
  - Growth retardation [Unknown]
  - Enuresis [Unknown]
  - Dizziness [Unknown]
  - Irritability [Unknown]
  - Somnolence [Unknown]
  - Vomiting [Unknown]
